FAERS Safety Report 5072781-8 (Version None)
Quarter: 2006Q3

REPORT INFORMATION
  Report Type: 
  Country: None (occurrence: None)
  Receive Date: 20060801
  Receipt Date: 20060717
  Transmission Date: 20061208
  Serious: Yes (Other)
  Sender: FDA-Public Use
  Company Number: GB200607000266

PATIENT
  Age: 77 Year
  Sex: Female
  Weight: 45 kg

DRUGS (22)
  1. XIGRIS [Suspect]
     Indication: ABDOMINAL SEPSIS
     Dosage: 24 UG INTRAVENOUS ; 12 ML EVERY HOUR INTRAVENOUS ; 12 ML EVERY HOUR SUBCUTANEOUS
     Route: 042
     Dates: start: 20060701, end: 20060704
  2. XIGRIS [Suspect]
     Indication: ABDOMINAL SEPSIS
     Dosage: 24 UG INTRAVENOUS ; 12 ML EVERY HOUR INTRAVENOUS ; 12 ML EVERY HOUR SUBCUTANEOUS
     Route: 042
     Dates: start: 20060701, end: 20060704
  3. XIGRIS [Suspect]
     Indication: ABDOMINAL SEPSIS
     Dosage: 24 UG INTRAVENOUS ; 12 ML EVERY HOUR INTRAVENOUS ; 12 ML EVERY HOUR SUBCUTANEOUS
     Route: 042
     Dates: start: 20060701, end: 20060704
  4. SODIUM CHLORIDE [Concomitant]
  5. DIGOXIN [Concomitant]
  6. LEVOTHYROXINE SODIUM [Concomitant]
  7. WARFARIN SODIUM [Concomitant]
  8. NICORANDIL [Concomitant]
  9. CARVEDILOL [Concomitant]
  10. ISOSORBIDE MONONITRATE [Concomitant]
  11. ATORVASTATIN CALCIUM [Concomitant]
  12. IMIPENEM [Concomitant]
  13. FOLIC ACID [Concomitant]
  14. METOCLOPRAMIDE [Concomitant]
  15. OMEPRAZOLE [Concomitant]
  16. GENTAMYCIN-MP (GENTAMICIN SULFATE) [Concomitant]
  17. ACETAMINOPHEN [Concomitant]
  18. EPINEPHRINE [Concomitant]
  19. NORADRENALINE (NOREPINEPHRINE) [Concomitant]
  20. VANCOMYCIN [Concomitant]
  21. XIGRIS [Suspect]
  22. XIGRIS [Suspect]

REACTIONS (6)
  - ALANINE AMINOTRANSFERASE INCREASED [None]
  - ASPARTATE AMINOTRANSFERASE INCREASED [None]
  - BLOOD ALKALINE PHOSPHATASE INCREASED [None]
  - BLOOD BILIRUBIN INCREASED [None]
  - LIVER FUNCTION TEST ABNORMAL [None]
  - MULTI-ORGAN FAILURE [None]
